FAERS Safety Report 8223386-9 (Version None)
Quarter: 2012Q1

REPORT INFORMATION
  Report Type: 
  Country: None (occurrence: None)
  Receive Date: 20120316
  Receipt Date: 20120302
  Transmission Date: 20120608
  Serious: Yes (Hospitalization)
  Sender: FDA-Public Use
  Company Number: 2012CP000028

PATIENT
  Age: 79 Year
  Sex: Female

DRUGS (15)
  1. NICARDIPINE HYDROCHLORIDE [Concomitant]
  2. ACETAMINOPHEN [Suspect]
     Dosage: IV
     Route: 042
  3. TRACRIUM [Suspect]
  4. SEVOFLURANE [Suspect]
  5. KETAMINE HCL [Suspect]
  6. KETOPROFEN [Suspect]
  7. DIPRIVAN [Suspect]
  8. ACUPAN [Suspect]
  9. LEVOTHYROXINE SODIUM [Concomitant]
  10. BISOPROLOL FUMARATE [Concomitant]
  11. PREDNISOLONE METASULFOBENZOATE SODIUM [Concomitant]
  12. CEFAZOLIN SODIUM [Concomitant]
  13. FUROSEMIDE [Concomitant]
  14. ESOMEPRAZOLE SODIUM [Concomitant]
  15. IMOVANE [Concomitant]

REACTIONS (8)
  - TOXIC SKIN ERUPTION [None]
  - VITAMIN B12 DEFICIENCY [None]
  - RASH MACULO-PAPULAR [None]
  - PRURITUS [None]
  - BLOOD CULTURE POSITIVE [None]
  - EPIDERMAL NECROSIS [None]
  - HAEMOGLOBIN DECREASED [None]
  - PSEUDOMONAS INFECTION [None]
